FAERS Safety Report 8976085 (Version 1)
Quarter: 2012Q4

REPORT INFORMATION
  Report Type: 
  Country: US (occurrence: US)
  Receive Date: 20121220
  Receipt Date: 20121220
  Transmission Date: 20130627
  Serious: Yes (Disabling, Other)
  Sender: FDA-Public Use
  Company Number: US-009507513-1212USA007156

PATIENT

DRUGS (1)
  1. FOSAMAX [Suspect]

REACTIONS (1)
  - Femur fracture [Unknown]
